FAERS Safety Report 7241574-5 (Version None)
Quarter: 2011Q1

REPORT INFORMATION
  Report Type: 
  Country: None (occurrence: None)
  Receive Date: 20110124
  Receipt Date: 20110118
  Transmission Date: 20110831
  Serious: Yes (Disabling, Other)
  Sender: FDA-Public Use
  Company Number: US-MERCK-0705USA01417

PATIENT
  Age: 74 Year
  Sex: Female
  Weight: 55 kg

DRUGS (4)
  1. FOSAMAX [Suspect]
     Route: 048
     Dates: end: 20031201
  2. PROZAC [Concomitant]
     Indication: DEPRESSION
     Route: 065
     Dates: start: 19870101
  3. FOSAMAX [Suspect]
     Indication: OSTEOPOROSIS
     Route: 048
     Dates: start: 19950101, end: 20060201
  4. BONIVA [Suspect]
     Route: 048

REACTIONS (16)
  - DYSPNOEA [None]
  - HYPERHIDROSIS [None]
  - ABDOMINAL DISCOMFORT [None]
  - JAW DISORDER [None]
  - MULTIPLE FRACTURES [None]
  - PAIN [None]
  - TREMOR [None]
  - DYSPNOEA EXERTIONAL [None]
  - ADVERSE DRUG REACTION [None]
  - ASTHENIA [None]
  - SPINAL FRACTURE [None]
  - TOOTH LOSS [None]
  - FALL [None]
  - OSTEONECROSIS OF JAW [None]
  - UPPER LIMB FRACTURE [None]
  - MUSCULOSKELETAL PAIN [None]
